FAERS Safety Report 24167571 (Version 1)
Quarter: 2024Q3

REPORT INFORMATION
  Report Type: Spontaneous
  Country: US (occurrence: US)
  Receive Date: 20240802
  Receipt Date: 20240802
  Transmission Date: 20241016
  Serious: Yes (Hospitalization, Other)
  Sender: PFIZER
  Company Number: US-PFIZER INC-202400226676

PATIENT
  Age: 75 Year
  Sex: Male

DRUGS (8)
  1. IDARUBICIN HYDROCHLORIDE [Suspect]
     Active Substance: IDARUBICIN HYDROCHLORIDE
     Indication: Chronic myeloid leukaemia
     Dosage: UNK
  2. IDARUBICIN HYDROCHLORIDE [Suspect]
     Active Substance: IDARUBICIN HYDROCHLORIDE
     Indication: Acute promyelocytic leukaemia
  3. CYTARABINE [Suspect]
     Active Substance: CYTARABINE
     Indication: Chronic myeloid leukaemia
     Dosage: UNK
  4. CYTARABINE [Suspect]
     Active Substance: CYTARABINE
     Indication: Acute promyelocytic leukaemia
  5. VESANOID [Suspect]
     Active Substance: TRETINOIN
     Indication: Chronic myeloid leukaemia
     Dosage: UNK
  6. VESANOID [Suspect]
     Active Substance: TRETINOIN
     Indication: Acute promyelocytic leukaemia
  7. SPRYCEL [Suspect]
     Active Substance: DASATINIB
     Indication: Chronic myeloid leukaemia
     Dosage: UNK
  8. SPRYCEL [Suspect]
     Active Substance: DASATINIB
     Indication: Acute promyelocytic leukaemia

REACTIONS (5)
  - Cerebrovascular accident [Recovering/Resolving]
  - Haemorrhage intracranial [Recovering/Resolving]
  - Arrhythmia [Unknown]
  - Colitis [Unknown]
  - Full blood count increased [Unknown]
